FAERS Safety Report 9355130 (Version 2)
Quarter: 2013Q3

REPORT INFORMATION
  Report Type: Spontaneous
  Country: DE (occurrence: DE)
  Receive Date: 20130619
  Receipt Date: 20130816
  Transmission Date: 20140515
  Serious: Yes (Other)
  Sender: FDA-Public Use
  Company Number: DE-VERTEX PHARMACEUTICALS INC-2013-007212

PATIENT
  Age: 54 Year
  Sex: Female
  Weight: 80 kg

DRUGS (3)
  1. INCIVO [Suspect]
     Indication: HEPATITIS C
     Dosage: UNK, QD
     Route: 048
     Dates: start: 20130515
  2. PEGASYS [Suspect]
     Indication: HEPATITIS C
     Dosage: 180 ?G, QW
     Route: 058
     Dates: start: 20130515
  3. REBETOL [Concomitant]
     Indication: HEPATITIS C
     Dosage: 2-0-3
     Route: 048
     Dates: start: 20130515

REACTIONS (1)
  - Gamma-glutamyltransferase increased [Recovered/Resolved]
